FAERS Safety Report 12226625 (Version 1)
Quarter: 2016Q1

REPORT INFORMATION
  Report Type: Spontaneous
  Country: US (occurrence: US)
  Receive Date: 20160331
  Receipt Date: 20160331
  Transmission Date: 20160526
  Serious: No
  Sender: FDA-Public Use
  Company Number: US-PFIZER INC-2016031113

PATIENT
  Age: 34 Year
  Sex: Male
  Weight: 81.65 kg

DRUGS (3)
  1. NORCO [Concomitant]
     Active Substance: ACETAMINOPHEN\HYDROCODONE BITARTRATE
     Indication: PAIN
  2. LITHIUM. [Concomitant]
     Active Substance: LITHIUM
  3. VIAGRA [Suspect]
     Active Substance: SILDENAFIL CITRATE
     Indication: ERECTILE DYSFUNCTION
     Dosage: 100 MG, ONE PILL
     Route: 048
     Dates: start: 200005

REACTIONS (2)
  - Prescription drug used without a prescription [Recovered/Resolved]
  - Erection increased [Unknown]

NARRATIVE: CASE EVENT DATE: 200005
